FAERS Safety Report 5610537-5 (Version None)
Quarter: 2008Q1

REPORT INFORMATION
  Report Type: 
  Country: None (occurrence: None)
  Receive Date: 20080201
  Receipt Date: 20080121
  Transmission Date: 20080703
  Serious: Yes (Other)
  Sender: FDA-Public Use
  Company Number: NL-BAYER-200810839GPV

PATIENT
  Age: 30 Year
  Sex: Female
  Weight: 72 kg

DRUGS (1)
  1. MIRENA [Suspect]
     Indication: DRUG USE FOR UNKNOWN INDICATION
     Dosage: TOTAL DAILY DOSE: 20 ?G  UNIT DOSE: 20 ?G/D
     Route: 015

REACTIONS (3)
  - BLISTER [None]
  - HYPERSENSITIVITY [None]
  - MENSTRUATION IRREGULAR [None]
